FAERS Safety Report 6808702-4 (Version None)
Quarter: 2010Q2

REPORT INFORMATION
  Report Type: 
  Country: None (occurrence: None)
  Receive Date: 20100629
  Receipt Date: 20090813
  Transmission Date: 20101027
  Serious: No
  Sender: FDA-Public Use
  Company Number: US-PFIZER INC-2009256501

PATIENT
  Sex: Female
  Weight: 77.11 kg

DRUGS (3)
  1. XANAX XR [Suspect]
     Indication: ANXIETY
     Dosage: UNK
     Dates: start: 20040101
  2. ESCITALOPRAM [Concomitant]
     Dosage: UNK
  3. LORAZEPAM [Concomitant]
     Dosage: UNK

REACTIONS (1)
  - FATIGUE [None]
